FAERS Safety Report 5594886-5 (Version None)
Quarter: 2007Q4

REPORT INFORMATION
  Report Type: 
  Country: None (occurrence: None)
  Receive Date: 20071218
  Receipt Date: 20070410
  Transmission Date: 20080405
  Serious: Yes (Hospitalization)
  Sender: FDA-Public Use
  Company Number: 2007028871

PATIENT
  Age: 61 Year
  Sex: Male
  Weight: 78.9 kg

DRUGS (1)
  1. BEXTRA [Suspect]
     Indication: BACK PAIN
     Dates: start: 20021101, end: 20040301

REACTIONS (3)
  - ANXIETY [None]
  - ARRHYTHMIA [None]
  - MYOCARDIAL INFARCTION [None]
